FAERS Safety Report 5594155-3 (Version None)
Quarter: 2008Q1

REPORT INFORMATION
  Report Type: 
  Country: None (occurrence: None)
  Receive Date: 20080115
  Receipt Date: 20080108
  Transmission Date: 20080703
  Serious: Yes (Hospitalization)
  Sender: FDA-Public Use
  Company Number: S08-USA-00107-01

PATIENT
  Age: 60 Year
  Sex: Female

DRUGS (7)
  1. LEXAPRO [Suspect]
     Indication: ANXIETY
     Dosage: 10 MG QD PO
     Route: 048
     Dates: start: 20020101
  2. SULINDAC [Concomitant]
  3. POTASSIUM CHLORIDE [Concomitant]
  4. CHLORTHALIDONE [Concomitant]
  5. CENESTIN [Concomitant]
  6. ACTONEL [Concomitant]
  7. ASPIRIN [Concomitant]

REACTIONS (4)
  - ACNE [None]
  - INGROWN HAIR [None]
  - PAIN [None]
  - STAPHYLOCOCCAL INFECTION [None]
